FAERS Safety Report 16447369 (Version 2)
Quarter: 2019Q3

REPORT INFORMATION
  Report Type: Report from Study
  Country: None (occurrence: US)
  Receive Date: 20190618
  Receipt Date: 20190719
  Transmission Date: 20191004
  Serious: Yes (Other)
  Sender: FDA-Public Use
  Company Number: US-ABBVIE-19K-163-2820490-00

PATIENT
  Age: 56 Year
  Sex: Female
  Weight: 146.19 kg

DRUGS (2)
  1. HUMIRA [Suspect]
     Active Substance: ADALIMUMAB
     Indication: PSORIATIC ARTHROPATHY
     Route: 058
     Dates: start: 201610, end: 20190224
  2. HUMIRA [Suspect]
     Active Substance: ADALIMUMAB
     Indication: PSORIASIS
     Route: 058
     Dates: start: 20190225

REACTIONS (12)
  - Psoriasis [Recovering/Resolving]
  - Fibromyalgia [Not Recovered/Not Resolved]
  - Procedural failure [Unknown]
  - Intervertebral disc degeneration [Not Recovered/Not Resolved]
  - Exostosis [Not Recovered/Not Resolved]
  - Sciatica [Not Recovered/Not Resolved]
  - Psoriasis [Not Recovered/Not Resolved]
  - Bone lesion [Not Recovered/Not Resolved]
  - Joint space narrowing [Not Recovered/Not Resolved]
  - Asthma [Not Recovered/Not Resolved]
  - Atrial fibrillation [Not Recovered/Not Resolved]
  - Osteoarthritis [Not Recovered/Not Resolved]

NARRATIVE: CASE EVENT DATE: 201812
